FAERS Safety Report 24257825 (Version 2)
Quarter: 2024Q3

REPORT INFORMATION
  Report Type: Spontaneous
  Country: CN (occurrence: CN)
  Receive Date: 20240828
  Receipt Date: 20240830
  Transmission Date: 20241016
  Serious: Yes (Life-Threatening, Hospitalization, Other)
  Sender: GLAXOSMITHKLINE
  Company Number: CN-GLAXOSMITHKLINE-CN2024GSK106437

PATIENT

DRUGS (1)
  1. ZEJULA [Suspect]
     Active Substance: NIRAPARIB
     Indication: Ovarian cancer
     Dosage: 200 MG, QD
     Route: 048
     Dates: start: 20230824, end: 20240726

REACTIONS (3)
  - Cardiac failure [Not Recovered/Not Resolved]
  - Pleural effusion [Unknown]
  - Ovarian cancer recurrent [Unknown]

NARRATIVE: CASE EVENT DATE: 20240701
